FAERS Safety Report 23830407 (Version 1)
Quarter: 2024Q2

REPORT INFORMATION
  Report Type: Spontaneous
  Country: JP (occurrence: JP)
  Receive Date: 20240508
  Receipt Date: 20240508
  Transmission Date: 20240716
  Serious: Yes (Hospitalization)
  Sender: FDA-Public Use
  Company Number: JP-ferring-EVA202400660FERRINGPH

PATIENT

DRUGS (7)
  1. NOCDURNA [Suspect]
     Active Substance: DESMOPRESSIN ACETATE
     Indication: Nocturia
     Route: 048
  2. NOCDURNA [Suspect]
     Active Substance: DESMOPRESSIN ACETATE
     Dosage: TAB
     Route: 048
     Dates: start: 2024
  3. ALFACALCIDOL [Concomitant]
     Active Substance: ALFACALCIDOL
     Route: 065
  4. SITAGLIPTIN [Concomitant]
     Active Substance: SITAGLIPTIN
     Route: 065
  5. SHIMBUTO [ACONITUM SPP. PROCESSED ROOT;ATRACTYLODES LANCEA RHIZOME;PAE [Concomitant]
     Route: 065
  6. NOVORAPID [Concomitant]
     Active Substance: INSULIN ASPART
     Route: 065
  7. DECADRON [Concomitant]
     Active Substance: DEXAMETHASONE
     Indication: Phrenic nerve irritation
     Route: 065
     Dates: start: 2024

REACTIONS (4)
  - Laminaplasty [Unknown]
  - Intentional dose omission [Unknown]
  - Underdose [Unknown]
  - Product use issue [Unknown]

NARRATIVE: CASE EVENT DATE: 20240101
